FAERS Safety Report 10558375 (Version 4)
Quarter: 2014Q4

REPORT INFORMATION
  Report Type: Report from Study
  Country: US (occurrence: US)
  Receive Date: 20141031
  Receipt Date: 20141219
  Transmission Date: 20150529
  Serious: Yes (Other)
  Sender: FDA-Public Use
  Company Number: US-AMGEN-USASP2014082874

PATIENT
  Age: 64 Year
  Sex: Female
  Weight: 76.83 kg

DRUGS (1)
  1. NPLATE [Suspect]
     Active Substance: ROMIPLOSTIM
     Indication: THROMBOCYTOPENIC PURPURA
     Dosage: 77MCG (1 MUG/KG), QWK
     Route: 058
     Dates: start: 201303

REACTIONS (12)
  - Rash [Unknown]
  - Initial insomnia [Recovering/Resolving]
  - Fibromyalgia [Not Recovered/Not Resolved]
  - Headache [Unknown]
  - Abdominal pain [Unknown]
  - Exostosis [Unknown]
  - Migraine [Unknown]
  - Asthenia [Unknown]
  - Pruritus [Unknown]
  - Middle insomnia [Recovering/Resolving]
  - Fatigue [Unknown]
  - Bone pain [Unknown]

NARRATIVE: CASE EVENT DATE: 2013
